FAERS Safety Report 4462655-5 (Version None)
Quarter: 2004Q3

REPORT INFORMATION
  Report Type: 
  Country: None (occurrence: None)
  Receive Date: 20040929
  Receipt Date: 20040917
  Transmission Date: 20050211
  Serious: Yes (Hospitalization, Other)
  Sender: FDA-Public Use
  Company Number: 2004-08-1653

PATIENT
  Age: 51 Year
  Sex: Male
  Weight: 104 kg

DRUGS (5)
  1. PEG-INTRON [Suspect]
     Indication: HEPATITIS C
     Dosage: 150 MCG QW SUBCUTANEOUS
     Route: 058
     Dates: start: 20040513, end: 20040730
  2. REBETOL [Suspect]
     Indication: HEPATITIS C
     Dosage: 1200 MG QD ORAL
     Route: 048
     Dates: start: 20040513, end: 20040730
  3. PROTONIX [Concomitant]
  4. INDERAL [Concomitant]
  5. LEXAPRO [Concomitant]

REACTIONS (17)
  - ARTHRALGIA [None]
  - ASCITES [None]
  - CELLULITIS [None]
  - CULTURE WOUND POSITIVE [None]
  - ERYTHEMA [None]
  - EYELID OEDEMA [None]
  - FLUID RETENTION [None]
  - HYPONATRAEMIA [None]
  - MYELODYSPLASTIC SYNDROME [None]
  - NEUTROPHIL COUNT DECREASED [None]
  - OEDEMA PERIPHERAL [None]
  - RASH [None]
  - RENAL FAILURE ACUTE [None]
  - RENAL TUBULAR NECROSIS [None]
  - SEPSIS [None]
  - STAPHYLOCOCCAL INFECTION [None]
  - SUBACUTE ENDOCARDITIS [None]
